FAERS Safety Report 25829132 (Version 2)
Quarter: 2025Q4

REPORT INFORMATION
  Report Type: Spontaneous
  Country: IQ (occurrence: IQ)
  Receive Date: 20250922
  Receipt Date: 20251010
  Transmission Date: 20260118
  Serious: Yes (Life-Threatening, Hospitalization, Other)
  Sender: ALKEM
  Company Number: None

PATIENT
  Age: 28 Year
  Sex: Male

DRUGS (1)
  1. IBUPROFEN [Suspect]
     Active Substance: IBUPROFEN
     Indication: Arthralgia
     Dosage: 400 MILLIGRAM (3-4 TIMES DAILY)
     Route: 065

REACTIONS (5)
  - Cardiac aneurysm [Recovered/Resolved]
  - Symptom masked [Recovered/Resolved]
  - Intentional product misuse [Unknown]
  - Condition aggravated [Recovered/Resolved]
  - Abdominal discomfort [Unknown]
